FAERS Safety Report 8570649-3 (Version None)
Quarter: 2012Q3

REPORT INFORMATION
  Report Type: 
  Country: None (occurrence: None)
  Receive Date: 20120804
  Receipt Date: 20120725
  Transmission Date: 20120928
  Serious: No
  Sender: FDA-Public Use
  Company Number: US-ASTRAZENECA-2012SE52767

PATIENT
  Age: 56 Year
  Sex: Female
  Weight: 78.9 kg

DRUGS (4)
  1. IBUPROFEN [Concomitant]
  2. TYCODONE [Concomitant]
  3. ESTRADIOL [Concomitant]
  4. CRESTOR [Suspect]
     Indication: BLOOD CHOLESTEROL INCREASED
     Route: 048
     Dates: start: 20120526

REACTIONS (1)
  - DIPLOPIA [None]
